FAERS Safety Report 22134204 (Version 1)
Quarter: 2023Q1

REPORT INFORMATION
  Report Type: Spontaneous
  Country: US (occurrence: US)
  Receive Date: 20230324
  Receipt Date: 20230324
  Transmission Date: 20230418
  Serious: Yes (Other)
  Sender: FDA-Public Use
  Company Number: US-ELI_LILLY_AND_COMPANY-US202303007815

PATIENT
  Age: 23 Year
  Sex: Male

DRUGS (1)
  1. ZYPREXA [Suspect]
     Active Substance: OLANZAPINE
     Indication: Injury
     Dosage: UNK UNK, UNKNOWN
     Route: 065

REACTIONS (3)
  - Seizure [Unknown]
  - Agitation [Unknown]
  - Off label use [Unknown]
